FAERS Safety Report 8790526 (Version 1)
Quarter: 2012Q4

REPORT INFORMATION
  Report Type: Spontaneous
  Country: None (occurrence: None)
  Receive Date: 20120905
  Receipt Date: 20120905
  Transmission Date: 20130627
  Serious: Yes (Disabling)
  Sender: FDA-Public Use
  Company Number: AUR-APL-2012-03696

PATIENT
  Age: 76 Year
  Sex: Female

DRUGS (3)
  1. ALENDRONIC ACID [Suspect]
     Route: 048
  2. MAXOLON (METOCLOPRAMIDE HYDROCHLORIDE) [Concomitant]
  3. SIMVASTATIN (SIMVASTATIN) [Concomitant]

REACTIONS (2)
  - Osteonecrosis of jaw [None]
  - Wrist fracture [None]
